FAERS Safety Report 8007130-6 (Version None)
Quarter: 2011Q4

REPORT INFORMATION
  Report Type: 
  Country: None (occurrence: None)
  Receive Date: 20111227
  Receipt Date: 20111219
  Transmission Date: 20120403
  Serious: Yes (Hospitalization)
  Sender: FDA-Public Use
  Company Number: US-JNJFOC-20111208793

PATIENT
  Sex: Female

DRUGS (2)
  1. INVEGA SUSTENNA [Suspect]
     Indication: PRODUCT USED FOR UNKNOWN INDICATION
     Route: 030
     Dates: start: 20111101
  2. INVEGA SUSTENNA [Suspect]
     Route: 030
     Dates: start: 20111214

REACTIONS (2)
  - DRUG INEFFECTIVE [None]
  - DRUG DOSE OMISSION [None]
